FAERS Safety Report 23767563 (Version 2)
Quarter: 2024Q2

REPORT INFORMATION
  Report Type: Report from Study
  Country: US (occurrence: US)
  Receive Date: 20240422
  Receipt Date: 20240502
  Transmission Date: 20240716
  Serious: Yes (Hospitalization, Other)
  Sender: FDA-Public Use
  Company Number: US-GILEAD-2024-0669942

PATIENT
  Sex: Male

DRUGS (1)
  1. AZTREONAM LYSINE [Suspect]
     Active Substance: AZTREONAM LYSINE
     Indication: Cystic fibrosis
     Dosage: INHALE 1 VIAL TID DAILY VIA NEBULIZER FOR 28 DAYS ON, 28 DAYS OFF
     Route: 055
     Dates: start: 20190418

REACTIONS (2)
  - Cystic fibrosis [Not Recovered/Not Resolved]
  - Pyrexia [Unknown]
